FAERS Safety Report 13945605 (Version 5)
Quarter: 2025Q2

REPORT INFORMATION
  Report Type: Spontaneous
  Country: IT (occurrence: IT)
  Receive Date: 20170907
  Receipt Date: 20250629
  Transmission Date: 20250717
  Serious: Yes (Other)
  Sender: SANOFI AVENTIS
  Company Number: IT-EMA-DD-20180220-SHREYAEVHP-131039

PATIENT
  Sex: Male

DRUGS (16)
  1. BENDAMUSTINE HYDROCHLORIDE [Suspect]
     Active Substance: BENDAMUSTINE HYDROCHLORIDE
     Indication: Non-Hodgkin^s lymphoma recurrent
     Route: 065
  2. DEXAMETHASONE [Suspect]
     Active Substance: DEXAMETHASONE
     Indication: Non-Hodgkin^s lymphoma recurrent
     Route: 065
     Dates: start: 20111001
  3. CISPLATIN [Suspect]
     Active Substance: CISPLATIN
     Indication: Non-Hodgkin^s lymphoma recurrent
     Route: 065
     Dates: start: 20111001
  4. FLUDARABINE PHOSPHATE [Suspect]
     Active Substance: FLUDARABINE PHOSPHATE
     Indication: Bone marrow conditioning regimen
     Route: 065
  5. ANTI-THYMOCYTE GLOBULIN (RABBIT) NOS [Suspect]
     Active Substance: LAPINE T-LYMPHOCYTE IMMUNE GLOBULIN
     Indication: Bone marrow conditioning regimen
     Route: 065
  6. METHOTREXATE [Suspect]
     Active Substance: METHOTREXATE
     Indication: Prophylaxis against graft versus host disease
     Route: 065
  7. TENOFOVIR DISOPROXIL FUMARATE [Suspect]
     Active Substance: TENOFOVIR DISOPROXIL FUMARATE
     Indication: Hepatitis B reactivation
     Dosage: 245 MG, QD
     Route: 048
     Dates: start: 2015
  8. RITUXIMAB [Suspect]
     Active Substance: RITUXIMAB
     Indication: Non-Hodgkin^s lymphoma recurrent
     Route: 065
     Dates: start: 2010
  9. RITUXIMAB [Suspect]
     Active Substance: RITUXIMAB
     Route: 065
     Dates: start: 20111001
  10. CYTARABINE [Suspect]
     Active Substance: CYTARABINE
     Indication: Non-Hodgkin^s lymphoma recurrent
     Route: 065
     Dates: start: 20111001
  11. CYCLOSPORINE [Suspect]
     Active Substance: CYCLOSPORINE
     Indication: Prophylaxis against graft versus host disease
     Route: 065
  12. BUSULFAN [Suspect]
     Active Substance: BUSULFAN
     Indication: Bone marrow conditioning regimen
     Route: 065
  13. THIOTEPA [Suspect]
     Active Substance: THIOTEPA
     Indication: Bone marrow conditioning regimen
     Route: 065
  14. ALEMTUZUMAB [Concomitant]
     Active Substance: ALEMTUZUMAB
     Indication: Non-Hodgkin^s lymphoma recurrent
     Route: 065
     Dates: start: 2011
  15. OFATUMUMAB [Concomitant]
     Active Substance: OFATUMUMAB
     Indication: Non-Hodgkin^s lymphoma recurrent
     Route: 065
     Dates: start: 2012, end: 2012
  16. LAMIVUDINE [Concomitant]
     Active Substance: LAMIVUDINE
     Indication: Antiviral prophylaxis
     Route: 065
     Dates: start: 2010, end: 2014

REACTIONS (5)
  - Hepatitis B reactivation [Recovered/Resolved]
  - Therapeutic response decreased [Unknown]
  - Nephropathy toxic [Recovering/Resolving]
  - Glomerular filtration rate decreased [Recovering/Resolving]
  - Osteopenia [Recovering/Resolving]

NARRATIVE: CASE EVENT DATE: 20110101
